FAERS Safety Report 9891443 (Version 1)
Quarter: 2014Q1

REPORT INFORMATION
  Report Type: Spontaneous
  Country: CH (occurrence: None)
  Receive Date: 20140210
  Receipt Date: 20140210
  Transmission Date: 20141002
  Serious: Yes (Hospitalization)
  Sender: FDA-Public Use
  Company Number: 2014027890

PATIENT
  Age: 67 Year
  Sex: Male
  Weight: 81 kg

DRUGS (23)
  1. FRAGMIN [Suspect]
     Indication: PROPHYLAXIS
     Route: 042
     Dates: start: 20131207, end: 20131207
  2. FRAGMIN [Suspect]
     Indication: CARDIAC OPERATION
     Route: 042
     Dates: start: 20131207, end: 20131207
  3. ASPEGIC [Suspect]
     Indication: PROPHYLAXIS
     Dosage: 500 IU, TOTAL, INTRAVENOUS
     Route: 042
     Dates: start: 20131207, end: 20131207
  4. ASPEGIC [Suspect]
     Indication: CARDIAC OPERATION
     Dosage: 500 IU, TOTAL, INTRAVENOUS
     Route: 042
     Dates: start: 20131207, end: 20131207
  5. EFFIENT [Suspect]
     Indication: PROPHYLAXIS
     Dosage: 60 MG TOTAL, ORAL
     Route: 048
     Dates: start: 20131207, end: 20131207
  6. EFFIENT [Suspect]
     Indication: CARDIAC OPERATION
     Dosage: 60 MG TOTAL, ORAL
     Route: 048
     Dates: start: 20131207, end: 20131207
  7. REOPRO [Suspect]
     Indication: PROPHYLAXIS
     Dosage: 20 MG, TOTAL INTERAVENOUS
     Route: 042
     Dates: start: 20131207, end: 20131207
  8. REOPRO [Suspect]
     Indication: CARDIAC OPERATION
     Dosage: 20 MG, TOTAL INTERAVENOUS
     Route: 042
     Dates: start: 20131207, end: 20131207
  9. ATORVA(ATORVASTATIN CALCIUM) [Concomitant]
  10. MORPHIN HCL BICHSEL(MORPHINE HYDROCHLORIDE) [Concomitant]
  11. AUGMENTIN [Concomitant]
  12. KLACID(CLARITHROMYCIN) [Concomitant]
  13. TAMIFLU(OSELTAMIVIR) [Concomitant]
  14. EFFIENT(PRASUGREL HYDROCHLORIDE) [Concomitant]
  15. ASPIRIN CARDIO (ACETYLSALICYLIC ACID) [Concomitant]
  16. NEBILET(NEBIVOLOL HYDROCHLORIDE) [Concomitant]
  17. COVERSUM(PERINDOPRIL) [Concomitant]
  18. KCL(POTASSIUM CHLORIDE) [Concomitant]
  19. TOREM(TORASEMIDE) [Concomitant]
  20. PHOSEPHATE(PHOSPHORIC ACID SODIUM) [Concomitant]
  21. MAGNESIUM(ASCORBIC ACID, MAGNEISUM OXIDE, PYRIDOXINE) [Concomitant]
  22. DOSPIR(IPRATROPIUM BROMIDE, SALBUTAMOL SULFATE) [Concomitant]
  23. ARIXTRA(FONDAPARINUX SODIUM) [Concomitant]

REACTIONS (15)
  - Drug interaction [None]
  - Haemoptysis [None]
  - Oxygen saturation decreased [None]
  - Mitral valve incompetence [None]
  - Oral candidiasis [None]
  - Reperfusion arrhythmia [None]
  - Inflammatory marker increased [None]
  - Lung infiltration [None]
  - Respiratory failure [None]
  - Pulmonary oedema [None]
  - Pulmonary alveolar haemorrhage [None]
  - Emphysema [None]
  - Haemoglobin decreased [None]
  - Platelet count decreased [None]
  - Pleural effusion [None]
